FAERS Safety Report 8123953-7 (Version None)
Quarter: 2012Q1

REPORT INFORMATION
  Report Type: 
  Country: None (occurrence: None)
  Receive Date: 20120209
  Receipt Date: 20120125
  Transmission Date: 20120608
  Serious: Yes (Hospitalization, Other)
  Sender: FDA-Public Use
  Company Number: GR-AMGEN-GRCSP2012005735

PATIENT
  Age: 70 Year
  Sex: Male
  Weight: 86 kg

DRUGS (6)
  1. EXFORGE [Concomitant]
     Indication: HYPERTENSION
     Dosage: UNK
     Route: 048
     Dates: start: 20110601, end: 20111222
  2. ARAVA [Concomitant]
     Indication: RHEUMATOID ARTHRITIS
     Dosage: 20 MG, 1X/DAY
     Route: 048
     Dates: start: 20090601, end: 20111222
  3. THYROHORMONE [Concomitant]
     Indication: HYPOTHYROIDISM
     Dosage: 0.1 UG, UNK
     Route: 048
     Dates: start: 20060101
  4. ENBREL [Suspect]
     Indication: RHEUMATOID ARTHRITIS
     Dosage: 50 MG, WEEKLY
     Route: 058
     Dates: start: 20090601, end: 20111210
  5. CALCIORAL D3 [Concomitant]
     Indication: OSTEOPOROSIS
     Dosage: UNK
     Route: 048
     Dates: start: 20070101, end: 20111222
  6. PREDNISOLONE [Concomitant]
     Indication: RHEUMATOID ARTHRITIS
     Dosage: 5 MG, 1X/DAY
     Route: 048
     Dates: start: 20000101, end: 20111222

REACTIONS (3)
  - CEREBROVASCULAR ACCIDENT [None]
  - ANTIPHOSPHOLIPID SYNDROME [None]
  - LUPUS-LIKE SYNDROME [None]
